FAERS Safety Report 5487642-X (Version None)
Quarter: 2007Q4

REPORT INFORMATION
  Report Type: 
  Country: None (occurrence: None)
  Receive Date: 20071012
  Receipt Date: 20071012
  Transmission Date: 20080405
  Serious: Yes (Hospitalization, Other)
  Sender: FDA-Public Use
  Company Number: None

PATIENT
  Age: 58 Year
  Sex: Female
  Weight: 83.9154 kg

DRUGS (2)
  1. WELLBUTRIN SR [Suspect]
     Indication: DEPRESSION
     Dosage: 100 OR 150 ONCE PER DAY PO
     Route: 048
     Dates: start: 19971201, end: 20040601
  2. WELLBUTRIN XL [Suspect]
     Indication: DEPRESSION
     Dosage: 300 ONCE PER DAY PO
     Route: 048
     Dates: start: 20040601, end: 20070901

REACTIONS (8)
  - ACTIVITIES OF DAILY LIVING IMPAIRED [None]
  - CONFUSIONAL STATE [None]
  - FEELING ABNORMAL [None]
  - GRAND MAL CONVULSION [None]
  - JOINT INJURY [None]
  - PAIN [None]
  - SPEECH DISORDER [None]
  - UPPER LIMB FRACTURE [None]
